FAERS Safety Report 14649961 (Version 1)
Quarter: 2018Q1

REPORT INFORMATION
  Report Type: Spontaneous
  Country: US (occurrence: US)
  Receive Date: 20180316
  Receipt Date: 20180316
  Transmission Date: 20180509
  Serious: No
  Sender: FDA-Public Use
  Company Number: US-009507513-1803USA003295

PATIENT
  Age: 26 Year
  Sex: Female

DRUGS (4)
  1. CROMOLYN [Concomitant]
     Active Substance: CROMOLYN
     Indication: GASTROINTESTINAL DISORDER
  2. SINGULAIR [Suspect]
     Active Substance: MONTELUKAST SODIUM
     Indication: EOSINOPHILIA
  3. SINGULAIR [Suspect]
     Active Substance: MONTELUKAST SODIUM
     Indication: GASTROINTESTINAL DISORDER
     Route: 048
  4. CROMOLYN [Concomitant]
     Active Substance: CROMOLYN
     Indication: EOSINOPHILIA

REACTIONS (1)
  - Off label use [Unknown]
